FAERS Safety Report 17064687 (Version 2)
Quarter: 2019Q4

REPORT INFORMATION
  Report Type: Report from Study
  Country: HU (occurrence: HU)
  Receive Date: 20191122
  Receipt Date: 20191126
  Transmission Date: 20200122
  Serious: Yes (Death, Hospitalization)
  Sender: FDA-Public Use
  Company Number: HU-ACTELION-A-CH2019-198338

PATIENT
  Age: 65 Year
  Sex: Female
  Weight: 89 kg

DRUGS (8)
  1. OPSUMIT [Suspect]
     Active Substance: MACITENTAN
     Indication: PULMONARY ARTERIAL HYPERTENSION
     Dosage: 10 MG, OD
     Route: 048
     Dates: start: 20171204, end: 20191107
  2. ADCIRCA [Concomitant]
     Active Substance: TADALAFIL
     Indication: PULMONARY HYPERTENSION
     Dosage: 20 MG, BID
     Route: 048
     Dates: start: 20161005, end: 20191107
  3. FOSTER [Concomitant]
     Active Substance: BECLOMETHASONE\FORMOTEROL
     Dosage: 2 DF, BID
     Dates: end: 20191107
  4. ASACTAL [Concomitant]
     Active Substance: ASPIRIN
     Dosage: 100 MG, QD
     Dates: end: 20191107
  5. BERODUAL [Concomitant]
     Active Substance: FENOTEROL HYDROBROMIDE\IPRATROPIUM BROMIDE
     Dosage: 20 GTT, TID
     Dates: end: 20191107
  6. TORVALIPIN [Concomitant]
     Active Substance: ATORVASTATIN
     Dosage: 20 MG, OD
     Dates: end: 20191107
  7. NOACID [PANTOPRAZOLE SODIUM SESQUIHYDRATE] [Concomitant]
     Active Substance: PANTOPRAZOLE SODIUM
     Dosage: 40 MG, BID
     Dates: end: 20191107
  8. ACTRAPID [Concomitant]
     Active Substance: INSULIN HUMAN
     Dosage: D M: 18U, N: 8U, E: 14
     Dates: start: 1990, end: 20191107

REACTIONS (5)
  - Pulmonary arterial hypertension [Fatal]
  - Condition aggravated [Fatal]
  - Cardiac arrest [Fatal]
  - Influenza [Unknown]
  - Cardiac failure [Unknown]

NARRATIVE: CASE EVENT DATE: 20191107
